FAERS Safety Report 8857481 (Version 1)
Quarter: 2012Q4

REPORT INFORMATION
  Report Type: 
  Country: ES (occurrence: ES)
  Receive Date: 20121024
  Receipt Date: 20121024
  Transmission Date: 20130627
  Serious: Yes (Hospitalization)
  Sender: FDA-Public Use
  Company Number: ES-BAYER-2012-109166

PATIENT
  Age: 83 Year
  Sex: Female

DRUGS (5)
  1. ADIRO 100 [Suspect]
     Dosage: 100 mg, QD
     Route: 048
     Dates: start: 2006, end: 20120323
  2. RISPERDAL [Suspect]
     Indication: DEMENTIA
     Route: 048
     Dates: start: 201003, end: 20120317
  3. ENALAPRIL [Concomitant]
     Indication: HYPERTENSION
     Dosage: 2.5 mg, UNK
     Route: 048
     Dates: start: 2010
  4. MIRTAZAPINE [Concomitant]
     Indication: DEPRESSION
     Dosage: 15 mg, QD
     Route: 048
     Dates: start: 2010
  5. LORMETAZEPAM [Concomitant]
     Indication: INSOMNIA
     Dosage: 1 mg, QD
     Route: 048
     Dates: start: 2010

REACTIONS (1)
  - Microcytic anaemia [Recovered/Resolved]
